FAERS Safety Report 6191787-9 (Version None)
Quarter: 2009Q2

REPORT INFORMATION
  Report Type: 
  Country: None (occurrence: None)
  Receive Date: 20090515
  Receipt Date: 20090515
  Transmission Date: 20091009
  Serious: Yes (Life-Threatening)
  Sender: FDA-Public Use
  Company Number: PHHY2009IT18028

PATIENT
  Sex: Female

DRUGS (3)
  1. TEGRETOL [Suspect]
     Indication: TRIGEMINAL NEURALGIA
     Dosage: 1 TABLET/DAY
     Route: 048
     Dates: start: 20090303, end: 20090330
  2. TEGRETOL [Suspect]
     Dosage: 2 POSOLIC UNITS
     Route: 048
     Dates: start: 20090401, end: 20090430
  3. LAROXYL [Concomitant]
     Dosage: 15 DROPS
     Route: 048
     Dates: start: 20081201, end: 20090430

REACTIONS (3)
  - ASTHENIA [None]
  - HYPOTHERMIA [None]
  - MUSCULAR WEAKNESS [None]
